FAERS Safety Report 7418166-8 (Version None)
Quarter: 2011Q2

REPORT INFORMATION
  Report Type: 
  Country: None (occurrence: None)
  Receive Date: 20110415
  Receipt Date: 20110406
  Transmission Date: 20111010
  Serious: Yes (Death)
  Sender: FDA-Public Use
  Company Number: UG-BAXTER-2011BH010308

PATIENT
  Age: 5 Month
  Sex: Male
  Weight: 7 kg

DRUGS (4)
  1. CEFTRIAXONE [Concomitant]
     Indication: PRODUCT USED FOR UNKNOWN INDICATION
     Route: 065
  2. QUININE SULFATE [Concomitant]
     Indication: PRODUCT USED FOR UNKNOWN INDICATION
     Route: 042
  3. PARACETAMOL [Concomitant]
     Indication: PRODUCT USED FOR UNKNOWN INDICATION
     Route: 065
  4. HUMAN ALBUMIN IMMUNO 5% [Suspect]
     Indication: FLUID REPLACEMENT
     Dates: start: 20090519, end: 20090519

REACTIONS (1)
  - PULMONARY OEDEMA [None]
